FAERS Safety Report 8129462-3 (Version None)
Quarter: 2012Q1

REPORT INFORMATION
  Report Type: 
  Country: None (occurrence: None)
  Receive Date: 20120210
  Receipt Date: 20120206
  Transmission Date: 20120608
  Serious: Yes (Life-Threatening)
  Sender: FDA-Public Use
  Company Number: US-JHP PHARMACEUTICALS, LLC-JHP201200024

PATIENT

DRUGS (1)
  1. DANTRIUM [Suspect]
     Indication: CEREBROVASCULAR SPASM
     Dosage: 1.25 MG/KG EVERY 6 HOURS
     Route: 042

REACTIONS (4)
  - OFF LABEL USE [None]
  - URINARY TRACT INFECTION [None]
  - ACUTE MYOCARDIAL INFARCTION [None]
  - INFUSION SITE IRRITATION [None]
